FAERS Safety Report 9664772 (Version 2)
Quarter: 2014Q2

REPORT INFORMATION
  Report Type: Report from Study
  Country: ES (occurrence: ES)
  Receive Date: 20131101
  Receipt Date: 20140519
  Transmission Date: 20141212
  Serious: No
  Sender: FDA-Public Use
  Company Number: ES-CELGENEUS-144-50794-13103886

PATIENT
  Age: 77 Year
  Sex: 0

DRUGS (1)
  1. VIDAZA [Suspect]
     Indication: ACUTE MYELOID LEUKAEMIA
     Route: 058

REACTIONS (1)
  - Drug ineffective [Unknown]
